FAERS Safety Report 4282868-5 (Version None)
Quarter: 2004Q1

REPORT INFORMATION
  Report Type: 
  Country: None (occurrence: None)
  Receive Date: 20040130
  Receipt Date: 20030730
  Transmission Date: 20041129
  Serious: No
  Sender: FDA-Public Use
  Company Number: US-BRISTOL-MYERS SQUIBB COMPANY-12341095

PATIENT
  Age: 37 Year
  Sex: Male
  Weight: 96 kg

DRUGS (2)
  1. SERZONE [Suspect]
     Indication: ANXIETY
     Route: 048
     Dates: start: 19990701
  2. LEVAQUIN [Concomitant]

REACTIONS (2)
  - LIVER FUNCTION TEST ABNORMAL [None]
  - PYREXIA [None]
